FAERS Safety Report 6499868-7 (Version None)
Quarter: 2009Q4

REPORT INFORMATION
  Report Type: 
  Country: None (occurrence: None)
  Receive Date: 20091214
  Receipt Date: 20091214
  Transmission Date: 20100525
  Serious: Yes (Hospitalization, Other)
  Sender: FDA-Public Use
  Company Number: None

PATIENT
  Age: 28 Year
  Sex: Female
  Weight: 113.3993 kg

DRUGS (1)
  1. NUVARING [Suspect]
     Indication: PROPHYLAXIS
     Dosage: ONE RING ONCE A MONTH VAG
     Route: 067
     Dates: start: 20090201, end: 20090530

REACTIONS (4)
  - BILE DUCT STONE [None]
  - BILIARY TRACT DISORDER [None]
  - CHOLECYSTECTOMY [None]
  - ECONOMIC PROBLEM [None]
